FAERS Safety Report 21295982 (Version 3)
Quarter: 2024Q3

REPORT INFORMATION
  Report Type: Report from Study
  Country: US (occurrence: US)
  Receive Date: 20220906
  Receipt Date: 20240925
  Transmission Date: 20241016
  Serious: No
  Sender: GLAXOSMITHKLINE
  Company Number: US-GLAXOSMITHKLINE-US2022AMR127435

PATIENT
  Sex: Female

DRUGS (3)
  1. NIRAPARIB [Suspect]
     Active Substance: NIRAPARIB
     Indication: Ovarian cancer
     Dosage: 300 MG, QD
     Dates: start: 20220716, end: 20220812
  2. NIRAPARIB [Suspect]
     Active Substance: NIRAPARIB
     Dosage: 300 MG, QD
     Dates: start: 20220823
  3. NIRAPARIB [Suspect]
     Active Substance: NIRAPARIB
     Indication: Fatigue
     Dosage: 200 MG DAILY QOD, ALTERNATING WITH 300 MG DAILY QOD. 200 MG ALTERNATING WITH 300 MG

REACTIONS (6)
  - Platelet count decreased [Recovering/Resolving]
  - Decreased appetite [Recovered/Resolved]
  - Fatigue [Not Recovered/Not Resolved]
  - Nausea [Not Recovered/Not Resolved]
  - Inappropriate schedule of product administration [Unknown]
  - Product use in unapproved indication [Unknown]
